FAERS Safety Report 11839129 (Version 1)
Quarter: 2015Q4

REPORT INFORMATION
  Report Type: Report from Study
  Country: US (occurrence: US)
  Receive Date: 20151216
  Receipt Date: 20151216
  Transmission Date: 20160305
  Serious: Yes (Other)
  Sender: FDA-Public Use
  Company Number: US-AMGEN-USASL2015133848

PATIENT
  Age: 81 Year
  Sex: Female

DRUGS (1)
  1. ENBREL [Suspect]
     Active Substance: ETANERCEPT
     Indication: PSORIASIS
     Dosage: 50 MG, QWK
     Route: 065
     Dates: start: 20140721

REACTIONS (6)
  - Alopecia [Unknown]
  - Hair texture abnormal [Unknown]
  - Dysphonia [Unknown]
  - Dry throat [Unknown]
  - Cataract operation [Recovered/Resolved]
  - Nasal dryness [Unknown]

NARRATIVE: CASE EVENT DATE: 201510
